FAERS Safety Report 15869280 (Version 2)
Quarter: 2019Q1

REPORT INFORMATION
  Report Type: Report from Study
  Country: AR (occurrence: AR)
  Receive Date: 20190125
  Receipt Date: 20190226
  Transmission Date: 20190417
  Serious: Yes (Other)
  Sender: FDA-Public Use
  Company Number: AR-BAYER-2019-016801

PATIENT
  Sex: Female

DRUGS (6)
  1. THYROXINE [Concomitant]
     Active Substance: LEVOTHYROXINE
  2. VITAMIN 15 [Concomitant]
  3. NEXAVAR [Suspect]
     Active Substance: SORAFENIB
     Indication: THYROID CANCER
     Dosage: 4 TABLETS PER DAY
     Route: 048
     Dates: start: 201801
  4. TRAMADOL. [Concomitant]
     Active Substance: TRAMADOL
  5. CALCIUM [Concomitant]
     Active Substance: CALCIUM
  6. INSULIN [Concomitant]
     Active Substance: INSULIN NOS

REACTIONS (1)
  - Coronary artery occlusion [None]
